FAERS Safety Report 17973755 (Version 1)
Quarter: 2020Q3

REPORT INFORMATION
  Report Type: Spontaneous
  Country: US (occurrence: US)
  Receive Date: 20200702
  Receipt Date: 20200702
  Transmission Date: 20201103
  Serious: No
  Sender: FDA-Public Use
  Company Number: None

PATIENT
  Sex: Female

DRUGS (1)
  1. PROGESTERONE/OIL 50MG/ML AUROMEDICS PHARMA [Suspect]
     Active Substance: PROGESTERONE
     Indication: INFERTILITY
     Dosage: ?          OTHER FREQUENCY:AS DIRECTED;?
     Route: 030
     Dates: start: 2019

REACTIONS (2)
  - Adverse drug reaction [None]
  - Product substitution issue [None]
